FAERS Safety Report 24864888 (Version 2)
Quarter: 2025Q1

REPORT INFORMATION
  Report Type: Spontaneous
  Country: CN (occurrence: CN)
  Receive Date: 20250121
  Receipt Date: 20250204
  Transmission Date: 20250409
  Serious: Yes (Other)
  Sender: NOVARTIS
  Company Number: CN-002147023-NVSC2025CN008510

PATIENT
  Sex: Female

DRUGS (3)
  1. MYFORTIC [Suspect]
     Active Substance: MYCOPHENOLATE SODIUM
     Indication: Prophylaxis
     Route: 048
  2. CYCLOSPORINE [Suspect]
     Active Substance: CYCLOSPORINE
     Indication: Transplant rejection
     Route: 065
  3. TACROLIMUS [Concomitant]
     Active Substance: TACROLIMUS
     Indication: Prophylaxis
     Route: 065

REACTIONS (6)
  - Obliterative bronchiolitis [Recovered/Resolved]
  - Pneumonia [Recovered/Resolved]
  - Platelet count decreased [Unknown]
  - Neutrophil count decreased [Unknown]
  - Gastrointestinal disorder [Recovered/Resolved]
  - Product use in unapproved indication [Unknown]
